FAERS Safety Report 6999082-2 (Version None)
Quarter: 2010Q3

REPORT INFORMATION
  Report Type: 
  Country: None (occurrence: None)
  Receive Date: 20100920
  Receipt Date: 20100913
  Transmission Date: 20110219
  Serious: Yes (Hospitalization)
  Sender: FDA-Public Use
  Company Number: US-BAYER-201032016NA

PATIENT
  Age: 55 Year
  Sex: Male

DRUGS (20)
  1. DACARBAZINE [Suspect]
     Indication: METASTATIC MALIGNANT MELANOMA
     Dosage: UNIT DOSE: 220 MG/M2
     Dates: start: 20100729
  2. CARMUSTINE [Suspect]
     Indication: METASTATIC MALIGNANT MELANOMA
     Dosage: UNIT DOSE: 50 MG/M2
     Dates: start: 20100729
  3. CISPLATIN [Suspect]
     Indication: METASTATIC MALIGNANT MELANOMA
     Dosage: UNIT DOSE: 25 MG/M2
     Dates: start: 20100729
  4. XL281 (BMS908662-INVESTIGATIONAL) [Suspect]
     Indication: METASTATIC MALIGNANT MELANOMA
     Dates: start: 20100527, end: 20100711
  5. ONDANSETRON [Concomitant]
  6. DEXAMETHASONE [Concomitant]
  7. MANNITOL [Concomitant]
  8. NAPROSYN [Concomitant]
     Dates: start: 20081008
  9. ZOFRAN [Concomitant]
     Dates: start: 20100527, end: 20100721
  10. LEVOTHYROXINE [Concomitant]
     Dates: start: 20081008
  11. COMPAZINE [Concomitant]
     Dates: start: 20100107
  12. SERTRALINE HYDROCHLORIDE [Concomitant]
     Dates: start: 20091216
  13. MORPHINE SULFATE [Concomitant]
     Dates: start: 20100721
  14. NALTREXONE HYDROCHLORIDE [Concomitant]
     Dates: start: 20100721
  15. MEDROL [Concomitant]
     Dates: start: 20100721
  16. IMITREX [Concomitant]
     Dates: start: 20081009, end: 20100721
  17. LYRICA [Concomitant]
     Dates: start: 20100708, end: 20100721
  18. PERCOCET [Concomitant]
     Dates: start: 20100204, end: 20100721
  19. MS CONTIN [Concomitant]
     Dates: start: 20100709, end: 20100721
  20. VENTOLIN [Concomitant]
     Dates: start: 20091216, end: 20100721

REACTIONS (3)
  - ANAEMIA [None]
  - DEHYDRATION [None]
  - THROMBOCYTOPENIA [None]
